FAERS Safety Report 6223061-6 (Version None)
Quarter: 2009Q2

REPORT INFORMATION
  Report Type: 
  Country: None (occurrence: None)
  Receive Date: 20090609
  Receipt Date: 20090525
  Transmission Date: 20091009
  Serious: Yes (Hospitalization)
  Sender: FDA-Public Use
  Company Number: TCI2009A01000

PATIENT
  Age: 74 Year
  Sex: Female

DRUGS (12)
  1. GEFARNATE (GEFARNATE) [Suspect]
     Indication: PROPHYLAXIS AGAINST GASTROINTESTINAL ULCER
     Dosage: (50MG) ORAL
     Route: 048
     Dates: start: 20080612, end: 20090323
  2. LORCAM (LORNOXICAM) [Suspect]
     Indication: LUMBAR SPINAL STENOSIS
     Dosage: 12MG (4MG) PER ORAL
     Route: 048
     Dates: start: 20080310, end: 20090323
  3. LORCAM (LORNOXICAM) [Suspect]
     Indication: LUMBAR SPINAL STENOSIS
     Dosage: 12MG (4MG) PER ORAL
     Route: 048
     Dates: start: 20090401
  4. BENET TABLETS 17.5MG (RISEDRONATE SODIUM) [Concomitant]
  5. ALFAROL (ALFACALCIDOL) [Concomitant]
  6. ADOFEED (FLURBIPROFEN) [Concomitant]
  7. KETOPROFEN [Concomitant]
  8. ZYRTEC [Concomitant]
  9. ATARAX [Concomitant]
  10. ZOLPIDEM TARTRATE [Concomitant]
  11. PAXIL [Concomitant]
  12. MEILAX (ETHYL LOFLAZEPATE) [Concomitant]

REACTIONS (4)
  - DISEASE RECURRENCE [None]
  - FAECES DISCOLOURED [None]
  - GASTRIC HAEMORRHAGE [None]
  - GASTRIC ULCER [None]
